FAERS Safety Report 5336887-8 (Version None)
Quarter: 2007Q2

REPORT INFORMATION
  Report Type: 
  Country: None (occurrence: None)
  Receive Date: 20070524
  Receipt Date: 20070524
  Transmission Date: 20071010
  Serious: No
  Sender: FDA-Public Use
  Company Number: None

PATIENT
  Sex: Female
  Weight: 74.8435 kg

DRUGS (1)
  1. ZETIA [Suspect]
     Indication: BLOOD CHOLESTEROL INCREASED
     Dosage: DAILY INJ
     Dates: start: 20070208, end: 20070508

REACTIONS (10)
  - ABDOMINAL PAIN UPPER [None]
  - ASTHENIA [None]
  - DYSSTASIA [None]
  - FATIGUE [None]
  - IMPAIRED WORK ABILITY [None]
  - MONOPLEGIA [None]
  - MUSCLE ENZYME INCREASED [None]
  - MUSCLE SPASTICITY [None]
  - NAUSEA [None]
  - SIMILAR REACTION ON PREVIOUS EXPOSURE TO DRUG [None]
